FAERS Safety Report 25211906 (Version 1)
Quarter: 2025Q2

REPORT INFORMATION
  Report Type: Spontaneous
  Country: ES (occurrence: ES)
  Receive Date: 20250418
  Receipt Date: 20250418
  Transmission Date: 20250717
  Serious: Yes (Hospitalization, Other)
  Sender: DR REDDYS
  Company Number: ES-GERMAN-ESP/2025/04/005579

PATIENT
  Age: 70 Year
  Sex: Male

DRUGS (1)
  1. SUNITINIB [Suspect]
     Active Substance: SUNITINIB
     Indication: Renal cancer
     Dosage: 50 MG/DAY FOR 4?WEEKS WITH 2 WEEK TREATMENT FREE PERIOD BETWEEN EACH CYCLE
     Route: 048

REACTIONS (7)
  - Toxic skin eruption [Recovered/Resolved]
  - Anaemia [Recovered/Resolved]
  - Constipation [Recovered/Resolved]
  - Mucosal inflammation [Recovered/Resolved]
  - Palmar-plantar erythrodysaesthesia syndrome [Recovered/Resolved]
  - Oedema genital [Recovered/Resolved]
  - Toxicity to various agents [Recovered/Resolved]
